FAERS Safety Report 4977877-4 (Version None)
Quarter: 2006Q2

REPORT INFORMATION
  Report Type: 
  Country: None (occurrence: None)
  Receive Date: 20060417
  Receipt Date: 20060404
  Transmission Date: 20061013
  Serious: Yes (Hospitalization, Other)
  Sender: FDA-Public Use
  Company Number: 2006047141

PATIENT
  Age: 26 Year
  Sex: Male
  Weight: 89.8122 kg

DRUGS (5)
  1. CELEBREX [Suspect]
     Indication: ARTHRALGIA
     Dosage: 200 MG (200 MG, 1 IN 1 D), ORAL
     Route: 048
     Dates: end: 20060101
  2. CELEBREX [Suspect]
     Indication: FIBROMYALGIA
     Dosage: 200 MG (200 MG, 1 IN 1 D), ORAL
     Route: 048
     Dates: end: 20060101
  3. SYNTHROID [Concomitant]
  4. CYANOCOBALAMIN [Concomitant]
  5. VITAMIN E [Concomitant]

REACTIONS (11)
  - ABASIA [None]
  - CELLULITIS [None]
  - DIFFICULTY IN WALKING [None]
  - DRUG INEFFECTIVE [None]
  - FATIGUE [None]
  - GAIT DISTURBANCE [None]
  - LETHARGY [None]
  - PAIN IN EXTREMITY [None]
  - PYREXIA [None]
  - RED BLOOD CELL COUNT INCREASED [None]
  - SYSTEMIC LUPUS ERYTHEMATOSUS [None]
